FAERS Safety Report 7462798-8 (Version None)
Quarter: 2011Q2

REPORT INFORMATION
  Report Type: 
  Country: None (occurrence: None)
  Receive Date: 20110506
  Receipt Date: 20110427
  Transmission Date: 20111010
  Serious: Yes (Death, Hospitalization, Other)
  Sender: FDA-Public Use
  Company Number: US-SANOFI-AVENTIS-2011SA020196

PATIENT
  Age: 88 Year
  Sex: Male
  Weight: 65.45 kg

DRUGS (10)
  1. SIMVASTATIN [Concomitant]
     Route: 048
     Dates: start: 20100212
  2. JEVTANA KIT [Suspect]
     Indication: PROSTATE CANCER
     Dosage: 25 MG/M2 (44 MG) EVERY 3 WEEKS  60 MG/1.5 ML
     Route: 041
     Dates: start: 20110316, end: 20110316
  3. COMPAZINE [Concomitant]
     Route: 048
     Dates: start: 20110309
  4. COREG [Concomitant]
     Route: 048
     Dates: start: 20100819
  5. CALCIUM/VITAMIN D [Concomitant]
     Route: 048
  6. PREDNISONE [Concomitant]
     Dosage: 2 (5 MG) TABLETS DAILY= 10 MG DAILY
     Route: 048
     Dates: start: 20110309
  7. ASPIRIN [Concomitant]
     Route: 048
  8. GLIPIZIDE [Concomitant]
     Route: 048
     Dates: start: 20090823
  9. NEURONTIN [Concomitant]
     Route: 048
     Dates: start: 20100211
  10. ORAL ANTIDIABETICS [Concomitant]
     Route: 048
     Dates: start: 20100820

REACTIONS (9)
  - ASTHENIA [None]
  - FATIGUE [None]
  - DYSURIA [None]
  - BLOOD POTASSIUM INCREASED [None]
  - WHITE BLOOD CELL COUNT DECREASED [None]
  - BLOOD SODIUM DECREASED [None]
  - CARDIAC ARREST [None]
  - NEUTROPENIA [None]
  - THROMBOCYTOPENIA [None]
